FAERS Safety Report 4536621-5 (Version None)
Quarter: 2004Q4

REPORT INFORMATION
  Report Type: 
  Country: None (occurrence: None)
  Receive Date: 20041223
  Receipt Date: 20040316
  Transmission Date: 20050328
  Serious: Yes (Other)
  Sender: FDA-Public Use
  Company Number: 200410920JP

PATIENT
  Age: 79 Year
  Sex: Male

DRUGS (5)
  1. AMARYL [Suspect]
     Route: 048
  2. ACTOS [Suspect]
  3. ADALAT [Concomitant]
  4. KINEDAK [Concomitant]
  5. TANATRIL [Concomitant]

REACTIONS (9)
  - ATROPHY [None]
  - BEDRIDDEN [None]
  - BLOOD IMMUNOGLOBULIN E INCREASED [None]
  - DIABETES MELLITUS INADEQUATE CONTROL [None]
  - EOSINOPHIL COUNT INCREASED [None]
  - GLYCOSYLATED HAEMOGLOBIN INCREASED [None]
  - HYPOAESTHESIA [None]
  - MUSCULAR WEAKNESS [None]
  - NEUROPATHY PERIPHERAL [None]
